FAERS Safety Report 6670969-3 (Version None)
Quarter: 2010Q2

REPORT INFORMATION
  Report Type: 
  Country: None (occurrence: None)
  Receive Date: 20100406
  Receipt Date: 20100406
  Transmission Date: 20101027
  Serious: Yes (Disabling)
  Sender: FDA-Public Use
  Company Number: None

PATIENT
  Age: 28 Year
  Sex: Female
  Weight: 95.2554 kg

DRUGS (1)
  1. TOPAMAX [Suspect]
     Indication: MIGRAINE PROPHYLAXIS
     Dosage: 50 MG. TWICE DAILY ORAL
     Route: 048
     Dates: start: 20090101

REACTIONS (2)
  - ALOPECIA [None]
  - TREATMENT NONCOMPLIANCE [None]
